FAERS Safety Report 21776671 (Version 2)
Quarter: 2022Q4

REPORT INFORMATION
  Report Type: Spontaneous
  Country: AT (occurrence: AT)
  Receive Date: 20221226
  Receipt Date: 20221230
  Transmission Date: 20230113
  Serious: No
  Sender: FDA-Public Use
  Company Number: AT-SANOFI-01406596

PATIENT
  Age: 47 Year
  Sex: Female
  Weight: 58 kg

DRUGS (1)
  1. LOVENOX [Suspect]
     Active Substance: ENOXAPARIN SODIUM
     Indication: Thrombosis prophylaxis
     Dosage: 4,000 INTERNATIONAL UNITS/0.4 MILLILITERS

REACTIONS (1)
  - No adverse event [Unknown]
